FAERS Safety Report 13913835 (Version 1)
Quarter: 2017Q3

REPORT INFORMATION
  Report Type: Spontaneous
  Country: US (occurrence: None)
  Receive Date: 20170827
  Receipt Date: 20170827
  Transmission Date: 20171127
  Serious: Yes (Hospitalization)
  Sender: FDA-Public Use
  Company Number: None

PATIENT
  Age: 54 Year
  Sex: Female

DRUGS (11)
  1. PREMARIN [Concomitant]
     Active Substance: ESTROGENS, CONJUGATED
  2. SILDENAFIL. [Concomitant]
     Active Substance: SILDENAFIL
  3. WARFARIN [Concomitant]
     Active Substance: WARFARIN
  4. KCL [Concomitant]
     Active Substance: POTASSIUM CHLORIDE
  5. TREPROSTINIL [Concomitant]
     Active Substance: TREPROSTINIL
  6. FUROSEMIDE. [Concomitant]
     Active Substance: FUROSEMIDE
  7. TOLAZONE [Concomitant]
  8. LETAIRIS [Suspect]
     Active Substance: AMBRISENTAN
     Indication: PULMONARY ARTERIAL HYPERTENSION
     Route: 048
     Dates: start: 201308
  9. COLCHICINE. [Concomitant]
     Active Substance: COLCHICINE
  10. SPIRONOLACTONE. [Concomitant]
     Active Substance: SPIRONOLACTONE
  11. METOPROLOL. [Concomitant]
     Active Substance: METOPROLOL

REACTIONS (2)
  - Cardiac failure [None]
  - Pulmonary oedema [None]

NARRATIVE: CASE EVENT DATE: 20170818
